FAERS Safety Report 17584663 (Version 1)
Quarter: 2020Q1

REPORT INFORMATION
  Report Type: Spontaneous
  Country: US (occurrence: US)
  Receive Date: 20200326
  Receipt Date: 20200326
  Transmission Date: 20200409
  Serious: No
  Sender: FDA-Public Use
  Company Number: US-009507513-2003USA007892

PATIENT
  Age: 30 Year
  Sex: Female

DRUGS (3)
  1. PROVENTIL [Suspect]
     Active Substance: ALBUTEROL
     Dosage: 2 PUFFS EVERY 4 HOURS
     Route: 055
     Dates: start: 200003
  2. FLOVENT [Concomitant]
     Active Substance: FLUTICASONE PROPIONATE
  3. PROVENTIL [Suspect]
     Active Substance: ALBUTEROL
     Indication: ASTHMA
     Dosage: 2 PUFFS EVERY 4 HOURS
     Route: 055
     Dates: start: 200003

REACTIONS (6)
  - Dyspnoea [Recovered/Resolved]
  - Circumstance or information capable of leading to medication error [Unknown]
  - Poor quality device used [Unknown]
  - Product quality issue [Unknown]
  - Fibromyalgia [Recovered/Resolved]
  - Ehlers-Danlos syndrome [Recovered/Resolved]

NARRATIVE: CASE EVENT DATE: 201909
